FAERS Safety Report 5060594-2 (Version None)
Quarter: 2006Q3

REPORT INFORMATION
  Report Type: 
  Country: None (occurrence: None)
  Receive Date: 20060721
  Receipt Date: 20060721
  Transmission Date: 20061208
  Serious: Yes (Hospitalization)
  Sender: FDA-Public Use
  Company Number: None

PATIENT
  Age: 74 Year
  Sex: Female
  Weight: 57.6068 kg

DRUGS (1)
  1. THALIDOMIDE [Suspect]

REACTIONS (4)
  - ATRIAL FIBRILLATION [None]
  - FALL [None]
  - HIP FRACTURE [None]
  - PYREXIA [None]
